FAERS Safety Report 7988607 (Version 3)
Quarter: 2012Q4

REPORT INFORMATION
  Report Type: 
  Country: CA (occurrence: CA)
  Receive Date: 20110613
  Receipt Date: 20121104
  Transmission Date: 20130627
  Serious: Yes (Death, Hospitalization, Other)
  Sender: FDA-Public Use
  Company Number: PHHO2005CA15499

PATIENT
  Sex: Female

DRUGS (7)
  1. ZOMETA [Suspect]
     Indication: BREAST CANCER
     Dosage: 4 mg, QMO
     Route: 042
     Dates: start: 20050615
  2. ZOMETA [Suspect]
     Dosage: 4 mg, once in every 3 weeks
     Route: 042
     Dates: start: 20060304
  3. ARIMIDEX [Concomitant]
  4. BONEFOS [Concomitant]
  5. OXYCONTIN [Concomitant]
  6. PERCOCET [Concomitant]
  7. PAMIDRONATE [Concomitant]

REACTIONS (4)
  - Death [Fatal]
  - Pain [Unknown]
  - Depressed mood [Unknown]
  - Blood pressure decreased [Unknown]
